FAERS Safety Report 8599934-6 (Version None)
Quarter: 2012Q3

REPORT INFORMATION
  Report Type: 
  Country: None (occurrence: None)
  Receive Date: 20120816
  Receipt Date: 20120807
  Transmission Date: 20120928
  Serious: Yes (Death, Hospitalization)
  Sender: FDA-Public Use
  Company Number: JP-JNJFOC-20120714905

PATIENT
  Sex: Female
  Weight: 40 kg

DRUGS (72)
  1. SIMPONI [Suspect]
     Route: 058
     Dates: start: 20120222
  2. METHOTREXATE [Concomitant]
     Indication: RHEUMATOID ARTHRITIS
     Dates: start: 20100216
  3. PANTOSIN [Concomitant]
     Route: 048
     Dates: start: 20120624, end: 20120724
  4. PREDNISOLONE [Concomitant]
     Route: 048
     Dates: start: 20120621, end: 20120701
  5. LEVEMIR [Concomitant]
     Route: 058
     Dates: start: 20120628, end: 20120628
  6. FULCALIQ 1 [Concomitant]
     Route: 041
     Dates: start: 20120701, end: 20120703
  7. PROPOFOL [Concomitant]
     Route: 041
     Dates: start: 20120710, end: 20120712
  8. ISOTONIC SODIUM CHLORIDE SOLUTION [Concomitant]
     Route: 041
     Dates: start: 20120711, end: 20120712
  9. ALBUMIN (HUMAN) [Concomitant]
     Route: 041
     Dates: start: 20120702, end: 20120704
  10. CEFTAZIDIME SODIUM [Concomitant]
     Route: 041
     Dates: start: 20120708, end: 20120710
  11. POTASSIUM CHLORIDE [Concomitant]
     Route: 041
     Dates: start: 20120705, end: 20120705
  12. LASIX [Concomitant]
     Route: 041
     Dates: start: 20120703, end: 20120710
  13. SUCRALFATE [Concomitant]
     Route: 048
     Dates: start: 20120622, end: 20120701
  14. GLUCOSE [Concomitant]
     Route: 041
     Dates: start: 20120701, end: 20120702
  15. FUROSEMIDE [Concomitant]
     Route: 041
     Dates: start: 20120703, end: 20120703
  16. PROPOFOL [Concomitant]
     Route: 041
     Dates: start: 20120709, end: 20120709
  17. HEPARIN SODIUM [Concomitant]
     Route: 041
     Dates: start: 20120703, end: 20120712
  18. ISOTONIC SODIUM CHLORIDE SOLUTION [Concomitant]
     Route: 041
     Dates: start: 20120701, end: 20120712
  19. ISOTONIC SODIUM CHLORIDE SOLUTION [Concomitant]
     Route: 041
     Dates: start: 20120701, end: 20120702
  20. FULCALIQ 2 [Concomitant]
     Route: 041
     Dates: start: 20120703, end: 20120712
  21. RHYTHMY [Concomitant]
     Route: 048
     Dates: start: 20120623, end: 20120623
  22. REBAMIPIDE [Concomitant]
     Route: 048
     Dates: start: 20120621, end: 20120701
  23. WARFARIN SODIUM [Concomitant]
     Route: 048
     Dates: start: 20120620, end: 20120624
  24. PREDNISOLONE [Concomitant]
     Route: 041
     Dates: start: 20120701, end: 20120702
  25. DILTIAZEM HYDROCHLORIDE [Concomitant]
     Route: 041
     Dates: start: 20120705, end: 20120712
  26. MANNITOL [Concomitant]
     Route: 041
     Dates: start: 20120703, end: 20120712
  27. MEROPENEM [Concomitant]
     Route: 041
     Dates: start: 20120702, end: 20120707
  28. ACETATED RINGER [Concomitant]
     Route: 041
     Dates: start: 20120701, end: 20120708
  29. OMEPRAZOLE [Concomitant]
     Route: 041
     Dates: start: 20120701, end: 20120712
  30. ISOTONIC SODIUM CHLORIDE SOLUTION [Concomitant]
     Route: 041
     Dates: start: 20120705, end: 20120712
  31. POTASSIUM CHLORIDE [Concomitant]
     Route: 041
     Dates: start: 20120706, end: 20120707
  32. CLINDAMYCIN [Concomitant]
     Route: 041
     Dates: start: 20120710, end: 20120710
  33. BREDININ [Concomitant]
     Indication: RHEUMATOID ARTHRITIS
     Route: 048
     Dates: start: 20090811
  34. LEVOFLOXACIN [Concomitant]
     Route: 048
     Dates: start: 20120622, end: 20120625
  35. LANSOPRAZOLE [Concomitant]
     Route: 048
     Dates: start: 20120621, end: 20120701
  36. GLUCOSE [Concomitant]
     Route: 041
     Dates: start: 20120704, end: 20120705
  37. GLUCOSE [Concomitant]
     Route: 041
     Dates: start: 20120711, end: 20120711
  38. GLUCOSE [Concomitant]
     Route: 041
     Dates: start: 20120703, end: 20120703
  39. SEISHOKU [Concomitant]
     Route: 041
     Dates: start: 20120711, end: 20120711
  40. SEISHOKU [Concomitant]
     Route: 041
     Dates: start: 20120712, end: 20120712
  41. ALBUMIN (HUMAN) [Concomitant]
     Route: 041
     Dates: start: 20120709, end: 20120711
  42. OMEGACIN [Concomitant]
     Route: 041
     Dates: start: 20120710, end: 20120710
  43. SIMPONI [Suspect]
     Indication: RHEUMATOID ARTHRITIS
     Route: 058
     Dates: start: 20120418
  44. SIMPONI [Suspect]
     Route: 058
     Dates: end: 20120629
  45. VERAPAMIL HCL [Concomitant]
     Route: 048
     Dates: start: 20120618, end: 20120618
  46. VERAPAMIL HCL [Concomitant]
     Route: 048
     Dates: start: 20120620, end: 20120627
  47. GLUCOSE [Concomitant]
     Route: 041
     Dates: start: 20120706, end: 20120710
  48. SOLULACT [Concomitant]
     Route: 041
     Dates: start: 20120701, end: 20120711
  49. SEISHOKU [Concomitant]
     Route: 041
     Dates: start: 20120701, end: 20120707
  50. SEISHOKU [Concomitant]
     Route: 041
     Dates: start: 20120710, end: 20120710
  51. DIGOXIN [Concomitant]
     Route: 041
     Dates: start: 20120705, end: 20120710
  52. SLOW-K [Concomitant]
     Route: 048
     Dates: start: 20120620, end: 20120627
  53. CELEBREX [Concomitant]
     Route: 048
     Dates: start: 20120621, end: 20120701
  54. CLINDAMYCIN [Concomitant]
     Route: 041
     Dates: start: 20120708, end: 20120709
  55. VERAPAMIL HCL [Concomitant]
     Route: 041
     Dates: start: 20120702, end: 20120703
  56. FUROSEMIDE [Concomitant]
     Route: 048
     Dates: start: 20120620, end: 20120627
  57. LOXONIN [Concomitant]
     Route: 062
     Dates: start: 20120625, end: 20120625
  58. UNKNOWN MEDICATION [Concomitant]
     Route: 041
     Dates: start: 20120701, end: 20120712
  59. PREDNISOLONE [Concomitant]
     Route: 041
     Dates: start: 20120703, end: 20120712
  60. FUROSEMIDE [Concomitant]
     Route: 041
     Dates: start: 20120701, end: 20120701
  61. PROPOFOL [Concomitant]
     Route: 041
     Dates: start: 20120702, end: 20120708
  62. SOLU-MEDROL [Concomitant]
     Route: 041
     Dates: start: 20120701, end: 20120702
  63. ISOTONIC SODIUM CHLORIDE SOLUTION [Concomitant]
     Route: 041
     Dates: start: 20120710, end: 20120710
  64. VERAPAMIL HCL [Concomitant]
     Route: 041
     Dates: start: 20120704, end: 20120705
  65. SIMPONI [Suspect]
     Route: 058
     Dates: start: 20120321
  66. BIO-THREE [Concomitant]
     Route: 048
     Dates: start: 20120622, end: 20120727
  67. BISOPROLOL FUMARATE [Concomitant]
     Route: 048
     Dates: start: 20120621, end: 20120701
  68. ELASPOL [Concomitant]
     Route: 065
     Dates: start: 20120701, end: 20120710
  69. ISOTONIC SODIUM CHLORIDE SOLUTION [Concomitant]
     Route: 041
     Dates: start: 20120708, end: 20120709
  70. LASIX [Concomitant]
     Route: 041
     Dates: start: 20120711, end: 20120712
  71. OMEGACIN [Concomitant]
     Route: 041
     Dates: start: 20120712, end: 20120712
  72. OMEGACIN [Concomitant]
     Route: 041
     Dates: start: 20120711, end: 20120711

REACTIONS (4)
  - ARRHYTHMIA [None]
  - FALL [None]
  - CARDIAC FAILURE [None]
  - PNEUMONIA [None]
